FAERS Safety Report 10183343 (Version 2)
Quarter: 2014Q4

REPORT INFORMATION
  Report Type: Spontaneous
  Country: FR (occurrence: None)
  Receive Date: 20140516
  Receipt Date: 20141210
  Transmission Date: 20150528
  Serious: Yes (Hospitalization, Other)
  Sender: FDA-Public Use
  Company Number: FR-ZYDUS-003413

PATIENT
  Age: 53 Year
  Sex: Female

DRUGS (3)
  1. PAROXETINE [Suspect]
     Active Substance: PAROXETINE\PAROXETINE HYDROCHLORIDE
     Indication: DEPRESSION
     Dosage: 20.00-MG-1.0DAYS /ORAL
     Route: 048
     Dates: start: 201402, end: 20140521
  2. PRAZEPAM [Concomitant]
     Active Substance: PRAZEPAM
     Dates: start: 2014
  3. MIRTAZAPINE. [Suspect]
     Active Substance: MIRTAZAPINE
     Indication: DEPRESSION
     Dosage: 15.00-MG-1.0DAYS /ORAL
     Route: 048
     Dates: start: 2014, end: 20140521

REACTIONS (11)
  - Hallucination, auditory [None]
  - Somnolence [None]
  - Hallucination, visual [None]
  - Suicidal ideation [None]
  - Nausea [None]
  - Dizziness [None]
  - Delusion [None]
  - Bradyphrenia [None]
  - Tremor [None]
  - Unevaluable event [None]
  - Hyperhidrosis [None]

NARRATIVE: CASE EVENT DATE: 201404
